FAERS Safety Report 25275019 (Version 2)
Quarter: 2025Q2

REPORT INFORMATION
  Report Type: Spontaneous
  Country: US (occurrence: US)
  Receive Date: 20250506
  Receipt Date: 20250506
  Transmission Date: 20250717
  Serious: Yes (Death, Other)
  Sender: AMGEN
  Company Number: US-AMGEN-USASP2025084953

PATIENT
  Age: 58 Year
  Sex: Male

DRUGS (13)
  1. RITUXIMAB [Suspect]
     Active Substance: RITUXIMAB
     Indication: Waldenstrom^s macroglobulinaemia
     Route: 065
  2. PREDNISONE [Suspect]
     Active Substance: PREDNISONE
     Indication: Autoimmune haemolytic anaemia
     Dosage: 10 MILLIGRAM, QD
     Route: 065
  3. PREDNISONE [Suspect]
     Active Substance: PREDNISONE
     Indication: Waldenstrom^s macroglobulinaemia
  4. PREDNISONE [Suspect]
     Active Substance: PREDNISONE
     Indication: Plasma cell myeloma
  5. CARFILZOMIB [Suspect]
     Active Substance: CARFILZOMIB
     Indication: Plasma cell myeloma
     Dosage: UNK UNK, QMO (GIVEN 3 DAYS )
     Route: 065
  6. DEXAMETHASONE [Concomitant]
     Active Substance: DEXAMETHASONE
     Dosage: 40 MILLIGRAM, QMO (GIVEN 3 DAYS)
  7. LENALIDOMIDE [Concomitant]
     Active Substance: LENALIDOMIDE
  8. BORTEZOMIB [Concomitant]
     Active Substance: BORTEZOMIB
  9. DARATUMUMAB [Concomitant]
     Active Substance: DARATUMUMAB
  10. POMALIDOMIDE [Concomitant]
     Active Substance: POMALIDOMIDE
  11. BENDAMUSTINE [Concomitant]
     Active Substance: BENDAMUSTINE
  12. CYCLOPHOSPHAMIDE [Concomitant]
     Active Substance: CYCLOPHOSPHAMIDE
  13. VINCRISTINE [Concomitant]
     Active Substance: VINCRISTINE

REACTIONS (8)
  - Acute hepatic failure [Fatal]
  - Encephalopathy [Unknown]
  - Disseminated varicella zoster virus infection [Unknown]
  - Hepatitis viral [Unknown]
  - Off label use [Unknown]
  - Drug ineffective for unapproved indication [Unknown]
  - Splenomegaly [Unknown]
  - Cholelithiasis [Unknown]
